FAERS Safety Report 7484743-1 (Version None)
Quarter: 2011Q2

REPORT INFORMATION
  Report Type: 
  Country: None (occurrence: None)
  Receive Date: 20110517
  Receipt Date: 20101230
  Transmission Date: 20111010
  Serious: Yes (Other)
  Sender: FDA-Public Use
  Company Number: US-BAYER-2011-007049

PATIENT
  Age: 18 Year
  Sex: Female
  Weight: 104.31 kg

DRUGS (3)
  1. PROZAC [Concomitant]
     Indication: DEPRESSION
     Dosage: UNK
     Dates: start: 20070101
  2. LORTAB [Concomitant]
     Indication: PAIN
     Dosage: UNK
     Dates: start: 20090911
  3. YAZ [Suspect]
     Indication: CONTRACEPTION
     Dosage: UNK
     Dates: start: 20080111, end: 20091001

REACTIONS (4)
  - CHOLECYSTITIS CHRONIC [None]
  - BILIARY DYSKINESIA [None]
  - GALLBLADDER CHOLESTEROLOSIS [None]
  - PAIN [None]
